FAERS Safety Report 7035658-4 (Version None)
Quarter: 2010Q4

REPORT INFORMATION
  Report Type: 
  Country: None (occurrence: None)
  Receive Date: 20101008
  Receipt Date: 20100924
  Transmission Date: 20110411
  Serious: Yes (Death)
  Sender: FDA-Public Use
  Company Number: JP-MERCK-1009USA05335

PATIENT
  Age: 45 Year
  Sex: Female

DRUGS (2)
  1. PEPCID [Suspect]
     Route: 048
  2. TEPRENONE [Concomitant]
     Route: 065

REACTIONS (1)
  - SECONDARY AMYLOIDOSIS [None]
